FAERS Safety Report 7152929-1 (Version None)
Quarter: 2010Q4

REPORT INFORMATION
  Report Type: 
  Country: None (occurrence: None)
  Receive Date: 20101213
  Receipt Date: 20101207
  Transmission Date: 20110411
  Serious: Yes (Hospitalization, Other)
  Sender: FDA-Public Use
  Company Number: US-AMGEN GMBH-QUU418411

PATIENT

DRUGS (13)
  1. NPLATE [Suspect]
     Indication: IDIOPATHIC THROMBOCYTOPENIC PURPURA
     Dosage: 7 A?G, UNK
     Route: 058
     Dates: start: 20070829, end: 20091209
  2. NPLATE [Suspect]
     Dosage: UNK
     Dates: start: 20090827
  3. NPLATE [Suspect]
     Dosage: UNK
     Dates: start: 20090828
  4. NPLATE [Suspect]
     Dosage: UNK
     Dates: start: 20090829
  5. NPLATE [Suspect]
     Dosage: UNK
     Dates: start: 20090830
  6. NPLATE [Suspect]
     Dosage: 7 A?G, UNK
     Dates: start: 20100201
  7. NPLATE [Suspect]
     Dosage: 8 A?G, UNK
     Dates: start: 20100419
  8. NPLATE [Suspect]
     Dosage: 9 A?G, UNK
     Dates: start: 20100426
  9. NPLATE [Suspect]
     Dosage: UNK A?G, UNK
     Dates: start: 20101018
  10. NPLATE [Suspect]
     Dosage: 520 A?G, UNK
     Dates: start: 20101022
  11. PREDNISONE [Concomitant]
     Indication: PRODUCT USED FOR UNKNOWN INDICATION
     Dosage: UNK UNK, UNK
     Dates: start: 20100121
  12. REVLIMID [Concomitant]
  13. HYDROCODONE BITARTRATE AND ACETAMINOPHEN [Concomitant]
     Indication: PRODUCT USED FOR UNKNOWN INDICATION

REACTIONS (16)
  - 5Q MINUS SYNDROME [None]
  - ANXIETY [None]
  - BILE DUCT CANCER [None]
  - BILOMA [None]
  - DEHYDRATION [None]
  - DRUG DOSE OMISSION [None]
  - HYPOVOLAEMIA [None]
  - MALAISE [None]
  - MARROW HYPERPLASIA [None]
  - MYELODYSPLASTIC SYNDROME [None]
  - NAUSEA [None]
  - PLATELET COUNT DECREASED [None]
  - THERAPEUTIC RESPONSE DECREASED [None]
  - VIRAL INFECTION [None]
  - VOMITING [None]
  - WEIGHT DECREASED [None]
